FAERS Safety Report 9549204 (Version 3)
Quarter: 2013Q4

REPORT INFORMATION
  Report Type: Spontaneous
  Country: US (occurrence: US)
  Receive Date: 20130924
  Receipt Date: 20131026
  Transmission Date: 20140711
  Serious: No
  Sender: FDA-Public Use
  Company Number: US-009507513-1309USA011117

PATIENT
  Age: 45 Year
  Sex: Female
  Weight: 68.27 kg

DRUGS (1)
  1. DR. SCHOLLS CLEAR AWAY WART REMOVER ONE STEP [Suspect]
     Indication: SKIN PAPILLOMA
     Dosage: UNK, UNKNOWN
     Route: 061
     Dates: start: 20130820, end: 20130827

REACTIONS (2)
  - Burning sensation [Not Recovered/Not Resolved]
  - Pain in extremity [Not Recovered/Not Resolved]
